FAERS Safety Report 4318704-8 (Version None)
Quarter: 2004Q1

REPORT INFORMATION
  Report Type: 
  Country: None (occurrence: None)
  Receive Date: 20040316
  Receipt Date: 20040316
  Transmission Date: 20041129
  Serious: Yes (Hospitalization)
  Sender: FDA-Public Use
  Company Number: None

PATIENT
  Sex: Female
  Weight: 26 kg

DRUGS (2)
  1. OXACILLIN [Suspect]
     Indication: ENDOCARDITIS STAPHYLOCOCCAL
     Dosage: 1400 MG IV Q6H DOSE DECREASED TO 700 MG IV Q6
     Route: 042
     Dates: start: 20030513, end: 20030527
  2. OXACILLIN [Suspect]
     Indication: ENDOCARDITIS STAPHYLOCOCCAL
     Dosage: 1400 MG IV Q6H DOSE DECREASED TO 700 MG IV Q6
     Route: 042
     Dates: start: 20030527, end: 20030604

REACTIONS (4)
  - EYELID OEDEMA [None]
  - HEPATIC FAILURE [None]
  - OLIGURIA [None]
  - RENAL FAILURE [None]
